FAERS Safety Report 16182183 (Version 2)
Quarter: 2019Q2

REPORT INFORMATION
  Report Type: Report from Study
  Country: None (occurrence: US)
  Receive Date: 20190411
  Receipt Date: 20190412
  Transmission Date: 20190711
  Serious: Yes (Other)
  Sender: FDA-Public Use
  Company Number: US-ABBVIE-19K-163-2733802-00

PATIENT
  Age: 16 Year
  Sex: Female

DRUGS (1)
  1. HUMIRA [Suspect]
     Active Substance: ADALIMUMAB
     Indication: JUVENILE IDIOPATHIC ARTHRITIS
     Dosage: CF
     Route: 058

REACTIONS (6)
  - Intentional self-injury [Recovered/Resolved]
  - Influenza [Unknown]
  - Nausea [Recovered/Resolved]
  - Haemorrhagic diathesis [Recovered/Resolved]
  - Fatigue [Recovered/Resolved]
  - Increased tendency to bruise [Recovered/Resolved]

NARRATIVE: CASE EVENT DATE: 2019
